FAERS Safety Report 5356097-8 (Version None)
Quarter: 2007Q2

REPORT INFORMATION
  Report Type: 
  Country: None (occurrence: None)
  Receive Date: 20070613
  Receipt Date: 20070530
  Transmission Date: 20071010
  Serious: No
  Sender: FDA-Public Use
  Company Number: US-ELI_LILLY_AND_COMPANY-US200705005231

PATIENT
  Age: 44 Year
  Sex: Female
  Weight: 105.22 kg

DRUGS (4)
  1. CYMBALTA [Suspect]
     Indication: DEPRESSION
     Dosage: 90 MG, UNK
     Dates: start: 20040101, end: 20060101
  2. CYMBALTA [Suspect]
     Dosage: 20 MG, 2/D
     Dates: start: 20060101
  3. ALLEGRA [Concomitant]
     Dosage: UNK, AS NEEDED
     Route: 065
  4. LEXAPRO [Concomitant]
     Indication: DEPRESSION
     Dosage: 10 MG, DAILY (1/D)
     Route: 065
     Dates: start: 20060101

REACTIONS (1)
  - WEIGHT INCREASED [None]
